FAERS Safety Report 12214520 (Version 9)
Quarter: 2022Q2

REPORT INFORMATION
  Report Type: Spontaneous
  Country: FR (occurrence: FR)
  Receive Date: 20160328
  Receipt Date: 20220423
  Transmission Date: 20220720
  Serious: Yes (Hospitalization, Congenital Anomaly, Other)
  Sender: FDA-Public Use
  Company Number: FR-ABBVIE-16P-056-1592095-00

PATIENT
  Age: 0 Year
  Sex: Male
  Weight: 3 kg

DRUGS (4)
  1. VALPROATE SODIUM [Suspect]
     Active Substance: VALPROATE SODIUM
     Indication: Maternal exposure timing unspecified
     Route: 064
  2. FOLIC ACID [Concomitant]
     Active Substance: FOLIC ACID
     Indication: Product used for unknown indication
     Dates: start: 20031126
  3. FERROUS SULFATE [Concomitant]
     Active Substance: FERROUS SULFATE
     Indication: Product used for unknown indication
  4. VOGALENE [Concomitant]
     Active Substance: METOPIMAZINE
     Indication: Product used for unknown indication
     Dates: start: 200310

REACTIONS (23)
  - Language disorder [Not Recovered/Not Resolved]
  - Dyspraxia [Not Recovered/Not Resolved]
  - Dysmorphism [Not Recovered/Not Resolved]
  - Dyslexia [Not Recovered/Not Resolved]
  - Hypotonia [Not Recovered/Not Resolved]
  - Melanocytic naevus [Unknown]
  - Auditory disorder [Unknown]
  - Ear, nose and throat examination abnormal [Unknown]
  - Foetal anticonvulsant syndrome [Unknown]
  - Memory impairment [Unknown]
  - Cognitive disorder [Unknown]
  - Developmental delay [Not Recovered/Not Resolved]
  - Learning disorder [Not Recovered/Not Resolved]
  - Enuresis [Unknown]
  - Attention deficit hyperactivity disorder [Unknown]
  - Disturbance in attention [Not Recovered/Not Resolved]
  - Foetal exposure during pregnancy [Unknown]
  - Cough [Unknown]
  - Pharyngitis [Unknown]
  - Escherichia infection [Unknown]
  - Autism spectrum disorder [Not Recovered/Not Resolved]
  - Encopresis [Not Recovered/Not Resolved]
  - Psychomotor retardation [Not Recovered/Not Resolved]

NARRATIVE: CASE EVENT DATE: 20081201
